FAERS Safety Report 7041075-3 (Version None)
Quarter: 2010Q4

REPORT INFORMATION
  Report Type: 
  Country: None (occurrence: None)
  Receive Date: 20101013
  Receipt Date: 20101004
  Transmission Date: 20110411
  Serious: Yes (Other)
  Sender: FDA-Public Use
  Company Number: FR-ASTRAZENECA-2010SE47328

PATIENT
  Age: 30689 Day
  Sex: Female
  Weight: 58.5 kg

DRUGS (11)
  1. NEXIUM [Suspect]
     Route: 048
     Dates: start: 20100914
  2. LESCOL [Suspect]
     Indication: HYPERCHOLESTEROLAEMIA
     Route: 048
  3. XARELTO [Suspect]
     Indication: PROPHYLAXIS
     Route: 048
     Dates: start: 20100915, end: 20100920
  4. PRADAXA [Suspect]
     Indication: PROPHYLAXIS
     Route: 048
     Dates: start: 20100921, end: 20100922
  5. DITROPAN [Suspect]
     Indication: INCONTINENCE
     Route: 048
  6. BIPROFENID [Suspect]
     Indication: INFLAMMATION
     Route: 048
     Dates: start: 20100914, end: 20100921
  7. ACTONEL WITH CALCIUM (COPACKAGED) [Concomitant]
     Indication: OSTEOPOROSIS
     Route: 048
  8. HYPERIUM [Concomitant]
     Indication: HYPERTENSION
     Route: 048
  9. TARDYFERON [Concomitant]
     Indication: ANAEMIA
     Route: 048
  10. TEMESTA [Concomitant]
     Route: 048
  11. ACETAMINOPHEN [Concomitant]

REACTIONS (1)
  - POST PROCEDURAL HAEMATOMA [None]
